FAERS Safety Report 8297738 (Version 3)
Quarter: 2013Q2

REPORT INFORMATION
  Report Type: Spontaneous
  Country: US (occurrence: None)
  Receive Date: 20111122
  Receipt Date: 20120703
  Transmission Date: 20140414
  Serious: Yes (Other)
  Sender: FDA-Public Use
  Company Number: PHHY2011US43898

PATIENT
  Age: 43 Year
  Sex: Female

DRUGS (2)
  1. GILENYA (FTY) CAPSULE, 0.5MG [Suspect]
     Indication: RELAPSING-REMITTING MULTIPLE SCLEROSIS
     Route: 048
     Dates: start: 20110517, end: 20120125
  2. TOPAMAX (TOPIRAMATE) [Concomitant]

REACTIONS (8)
  - NAUSEA [None]
  - CHILLS [None]
  - HEADACHE [None]
  - DIARRHOEA [None]
  - Chest pain [None]
  - Cardiac disorder [None]
  - Loss of consciousness [None]
  - Pruritus [None]
